FAERS Safety Report 25842378 (Version 1)
Quarter: 2025Q3

REPORT INFORMATION
  Report Type: Spontaneous
  Country: US (occurrence: None)
  Receive Date: 20250924
  Receipt Date: 20250924
  Transmission Date: 20251021
  Serious: No
  Sender: FDA-CTU
  Company Number: None

PATIENT
  Age: 82 Year
  Sex: Female
  Weight: 80.1 kg

DRUGS (18)
  1. COSENTYX [Suspect]
     Active Substance: SECUKINUMAB
     Indication: Psoriatic arthropathy
  2. COSENTYX [Suspect]
     Active Substance: SECUKINUMAB
     Indication: Sjogren^s syndrome
  3. COSENTYX [Suspect]
     Active Substance: SECUKINUMAB
     Indication: Sjogren^s syndrome
  4. LEVOTHYROXINE [Concomitant]
     Active Substance: LEVOTHYROXINE
  5. LASIX [Concomitant]
     Active Substance: FUROSEMIDE
  6. POTASSIUM [Concomitant]
     Active Substance: POTASSIUM
  7. METFORMIN [Concomitant]
     Active Substance: METFORMIN HYDROCHLORIDE
  8. PRILOSEC [Concomitant]
     Active Substance: OMEPRAZOLE MAGNESIUM
  9. LIPITOR [Concomitant]
     Active Substance: ATORVASTATIN CALCIUM
  10. LISINOPRIL [Concomitant]
     Active Substance: LISINOPRIL
  11. CARVEDILOL [Concomitant]
     Active Substance: CARVEDILOL
  12. JARDIANCE [Concomitant]
     Active Substance: EMPAGLIFLOZIN
  13. MOUNJARO [Concomitant]
     Active Substance: TIRZEPATIDE
  14. ASPIRIN [Concomitant]
     Active Substance: ASPIRIN
  15. ACETAMINOPHEN [Concomitant]
     Active Substance: ACETAMINOPHEN
  16. IBUPROFEN [Concomitant]
     Active Substance: IBUPROFEN
  17. VITAMIN D [Concomitant]
     Active Substance: VITAMIN D NOS
  18. VITAMINS [Concomitant]
     Active Substance: VITAMINS

REACTIONS (3)
  - Rash [None]
  - Pruritus [None]
  - Urticaria [None]

NARRATIVE: CASE EVENT DATE: 20250910
